FAERS Safety Report 10884850 (Version 2)
Quarter: 2015Q1

REPORT INFORMATION
  Report Type: Spontaneous
  Country: CH (occurrence: None)
  Receive Date: 20150227
  Receipt Date: 20150317
  Transmission Date: 20150721
  Serious: Yes (Hospitalization)
  Sender: FDA-Public Use
  Company Number: 20150107

PATIENT
  Age: 82 Year
  Sex: Female

DRUGS (2)
  1. ALPROSTADIL. [Suspect]
     Active Substance: ALPROSTADIL
     Indication: PRODUCT USED FOR UNKNOWN INDICATION
     Dosage: DOSES NOT PROVIDED
  2. VENOFER [Suspect]
     Active Substance: IRON SUCROSE
     Indication: ANAEMIA
     Dosage: 100 MG, 1 IN 1 TOTAL, INTRAVENOUS DRIP
     Route: 041
     Dates: start: 20150202, end: 20150202

REACTIONS (2)
  - Henoch-Schonlein purpura [None]
  - Hypersensitivity [None]

NARRATIVE: CASE EVENT DATE: 20150202
